FAERS Safety Report 11652759 (Version 1)
Quarter: 2015Q4

REPORT INFORMATION
  Report Type: Spontaneous
  Country: NZ (occurrence: NZ)
  Receive Date: 20151022
  Receipt Date: 20151022
  Transmission Date: 20160304
  Serious: Yes (Death)
  Sender: FDA-Public Use
  Company Number: NZ-ASTRAZENECA-2015SF01151

PATIENT
  Age: 24822 Day
  Sex: Female
  Weight: 98 kg

DRUGS (5)
  1. TICAGRELOR [Suspect]
     Active Substance: TICAGRELOR
     Indication: ACUTE CORONARY SYNDROME
     Route: 048
     Dates: start: 20141221, end: 20141224
  2. DILTIAZEM [Concomitant]
     Active Substance: DILTIAZEM
     Route: 048
     Dates: start: 20141221, end: 20141224
  3. WARFARIN [Concomitant]
     Active Substance: WARFARIN
  4. ASPIRIN EC [Concomitant]
     Active Substance: ASPIRIN
     Dates: start: 20141221, end: 20141224
  5. CLEXANE [Concomitant]
     Active Substance: ENOXAPARIN SODIUM
     Route: 058
     Dates: start: 20141221, end: 20141224

REACTIONS (1)
  - Peritoneal haemorrhage [Fatal]

NARRATIVE: CASE EVENT DATE: 20141221
